FAERS Safety Report 5371089-0 (Version None)
Quarter: 2007Q2

REPORT INFORMATION
  Report Type: 
  Country: None (occurrence: None)
  Receive Date: 20070615
  Receipt Date: 20070319
  Transmission Date: 20071010
  Serious: Yes (Other)
  Sender: FDA-Public Use
  Company Number: 200711897US

PATIENT
  Age: 70 Year
  Sex: Female

DRUGS (23)
  1. LANTUS [Suspect]
     Indication: DIABETES MELLITUS INSULIN-DEPENDENT
     Dosage: 20 U HS
     Dates: start: 20070315, end: 20070315
  2. LANTUS [Suspect]
     Indication: DIABETES MELLITUS INSULIN-DEPENDENT
     Dosage: 16 U HS
     Dates: start: 20070316, end: 20070316
  3. LANTUS [Suspect]
     Indication: DIABETES MELLITUS INSULIN-DEPENDENT
     Dosage: 10 U HS
     Dates: start: 20070317, end: 20070317
  4. LANTUS [Suspect]
     Indication: DIABETES MELLITUS INSULIN-DEPENDENT
     Dosage: 12 U HS
     Dates: start: 20070318, end: 20070318
  5. LANTUS [Suspect]
     Indication: DIABETES MELLITUS INSULIN-DEPENDENT
     Dosage: 10 U HS
     Dates: start: 20070319, end: 20070319
  6. LANTUS [Suspect]
     Indication: DIABETES MELLITUS INSULIN-DEPENDENT
     Dosage: 11 U HS
     Dates: start: 20070320
  7. INSULIN (NOVOLIN /00030501/) [Concomitant]
  8. APIDRA [Concomitant]
  9. REGULAR INSULIN [Concomitant]
  10. FUROSEMIDE (LASIX /00032601/) [Concomitant]
  11. ESOMEPRAZOLE MAGNESIUM [Concomitant]
  12. VITAMINS NOS (MVI) [Concomitant]
  13. CALCIUM CHLORIDE [Concomitant]
  14. COREG [Concomitant]
  15. CLOPIDOGREL (PLAVIX /01220701/) [Concomitant]
  16. ADENOSINE (TIRCOR /00090101/) [Concomitant]
  17. VLASARTAN (DIOVANE) [Concomitant]
  18. IRON [Concomitant]
  19. SERTRALINE (ZOLOFT /01011401) [Concomitant]
  20. LATANOPROST (XALATAN /01297301/) [Concomitant]
  21. SYNTHROID [Concomitant]
  22. ASPIRIN [Concomitant]
  23. FOSAMAX [Concomitant]

REACTIONS (2)
  - BLOOD GLUCOSE INCREASED [None]
  - HYPOGLYCAEMIA [None]
